FAERS Safety Report 7391870-6 (Version None)
Quarter: 2011Q2

REPORT INFORMATION
  Report Type: 
  Country: None (occurrence: None)
  Receive Date: 20110404
  Receipt Date: 20110330
  Transmission Date: 20111010
  Serious: Yes (Hospitalization)
  Sender: FDA-Public Use
  Company Number: FR-ROCHE-768829

PATIENT
  Sex: Female

DRUGS (3)
  1. CISPLATIN [Suspect]
     Dosage: DOSE FORM: INFUSION
     Route: 042
     Dates: start: 20090701
  2. TAXOTERE [Suspect]
     Route: 042
     Dates: start: 20090701
  3. AVASTIN [Suspect]
     Dosage: AVASTIN 25 MG/ML SOLUTION FOR INFUSION
     Route: 042
     Dates: start: 20090701

REACTIONS (3)
  - CARDIAC FAILURE CONGESTIVE [None]
  - CARDIAC FAILURE [None]
  - ACUTE PULMONARY OEDEMA [None]
